FAERS Safety Report 10407887 (Version 1)
Quarter: 2014Q3

REPORT INFORMATION
  Report Type: Spontaneous
  Country: US (occurrence: PL)
  Receive Date: 20140825
  Receipt Date: 20140825
  Transmission Date: 20150326
  Serious: Yes (Other)
  Sender: FDA-Public Use
  Company Number: PL-FRI-1000070125

PATIENT
  Age: 71 Year
  Sex: Male
  Weight: 73 kg

DRUGS (2)
  1. ROFLUMILAST [Suspect]
     Active Substance: ROFLUMILAST
     Dosage: 500 MCG
     Route: 048
     Dates: start: 20140724, end: 20140725
  2. ROFLUMILAST [Suspect]
     Active Substance: ROFLUMILAST
     Dosage: 500 MCG
     Route: 048
     Dates: start: 20140602, end: 20140720

REACTIONS (2)
  - Sinus tachycardia [Not Recovered/Not Resolved]
  - Palpitations [Recovered/Resolved with Sequelae]

NARRATIVE: CASE EVENT DATE: 20140720
